FAERS Safety Report 25703122 (Version 1)
Quarter: 2025Q3

REPORT INFORMATION
  Report Type: Report from Study
  Country: BR (occurrence: BR)
  Receive Date: 20250820
  Receipt Date: 20250820
  Transmission Date: 20251020
  Serious: Yes (Other)
  Sender: JOHNSON AND JOHNSON
  Company Number: BR-JNJFOC-20250817346

PATIENT
  Age: 42 Year
  Sex: Female
  Weight: 96 kg

DRUGS (2)
  1. SIMPONI [Suspect]
     Active Substance: GOLIMUMAB
     Indication: Colitis ulcerative
     Route: 058
     Dates: start: 2024
  2. SIMPONI [Suspect]
     Active Substance: GOLIMUMAB
     Indication: Arthritis
     Dosage: FREQUENCY: EVERY 15 OR 14 DAYS
     Route: 058

REACTIONS (5)
  - Colitis ulcerative [Unknown]
  - Influenza [Unknown]
  - Decreased immune responsiveness [Unknown]
  - Heavy menstrual bleeding [Unknown]
  - Off label use [Unknown]

NARRATIVE: CASE EVENT DATE: 20250301
